FAERS Safety Report 9291185 (Version 1)
Quarter: 2013Q2

REPORT INFORMATION
  Report Type: Spontaneous
  Country: IT (occurrence: IT)
  Receive Date: 20130515
  Receipt Date: 20130515
  Transmission Date: 20140414
  Serious: Yes (Life-Threatening)
  Sender: FDA-Public Use
  Company Number: PHHY2013IT047980

PATIENT
  Sex: Female

DRUGS (4)
  1. CITALOPRAM [Suspect]
     Indication: MEDICATION ERROR
     Dosage: 320 MG, TOTAL
     Route: 048
     Dates: start: 20130412, end: 20130412
  2. CARDIRENE [Concomitant]
     Indication: CARDIOMYOPATHY
     Dates: start: 20120101, end: 20130412
  3. NITRODERM TTS [Concomitant]
     Indication: CARDIOMYOPATHY
     Dates: start: 20120101, end: 20130412
  4. BISOPROLOL [Concomitant]
     Indication: HYPERTENSION
     Dates: start: 20120101, end: 20130412

REACTIONS (2)
  - Disorientation [Recovering/Resolving]
  - Agitation [Recovering/Resolving]
